FAERS Safety Report 6013349-6 (Version None)
Quarter: 2008Q4

REPORT INFORMATION
  Report Type: 
  Country: None (occurrence: None)
  Receive Date: 20081216
  Receipt Date: 20080715
  Transmission Date: 20090506
  Serious: Yes (Other)
  Sender: FDA-Public Use
  Company Number: US-WYE-H05145508

PATIENT
  Age: 16 Year
  Sex: Male
  Weight: 56.75 kg

DRUGS (3)
  1. EFFEXOR XR [Suspect]
     Indication: ANXIETY
     Dosage: 150 MG 1X PER 1 DAY, ORAL ; 37.5 MG 1X PER 1 DAY, ORAL ; ^TAPERING OFF^, ORAL
     Route: 048
     Dates: start: 20060801, end: 20080201
  2. EFFEXOR XR [Suspect]
     Indication: ANXIETY
     Dosage: 150 MG 1X PER 1 DAY, ORAL ; 37.5 MG 1X PER 1 DAY, ORAL ; ^TAPERING OFF^, ORAL
     Route: 048
     Dates: start: 20080201, end: 20080425
  3. EFFEXOR XR [Suspect]
     Indication: ANXIETY
     Dosage: 150 MG 1X PER 1 DAY, ORAL ; 37.5 MG 1X PER 1 DAY, ORAL ; ^TAPERING OFF^, ORAL
     Route: 048
     Dates: start: 20080429

REACTIONS (4)
  - DRUG WITHDRAWAL SYNDROME [None]
  - FATIGUE [None]
  - HEADACHE [None]
  - PARAESTHESIA [None]
